FAERS Safety Report 23288362 (Version 4)
Quarter: 2024Q1

REPORT INFORMATION
  Report Type: Spontaneous
  Country: CH (occurrence: CH)
  Receive Date: 20231212
  Receipt Date: 20240119
  Transmission Date: 20240410
  Serious: Yes (Hospitalization)
  Sender: FDA-Public Use
  Company Number: CH-UCBSA-2023057896

PATIENT
  Sex: Male
  Weight: 79.3 kg

DRUGS (4)
  1. CIMZIA [Suspect]
     Active Substance: CERTOLIZUMAB PEGOL
     Indication: Rheumatoid arthritis
     Dosage: 400 MILLIGRAM, EV 2 WEEKS(QOW)
     Route: 058
     Dates: start: 20231024, end: 202311
  2. LEVOTHYROXINE [Concomitant]
     Active Substance: LEVOTHYROXINE\LEVOTHYROXINE SODIUM
     Indication: Hypothyroidism
     Dosage: 0.1 MILLIGRAM, MON - SUN; 1 TBL. AT 06:30
     Route: 048
  3. LISINOPRIL [Concomitant]
     Active Substance: LISINOPRIL
     Indication: Hypertension
     Dosage: 5 MILLIGRAM, ONCE DAILY (QD)
  4. PREDNISONE [Concomitant]
     Active Substance: PREDNISONE
     Indication: Product used for unknown indication
     Dosage: 2 MILLIGRAM, ONCE DAILY (QD)

REACTIONS (6)
  - Bursitis infective staphylococcal [Recovered/Resolved]
  - Rash [Recovered/Resolved]
  - Cellulitis staphylococcal [Recovered/Resolved]
  - Oedema peripheral [Recovered/Resolved]
  - Folliculitis [Unknown]
  - Catheter site infection [Unknown]

NARRATIVE: CASE EVENT DATE: 20230101
